FAERS Safety Report 13630223 (Version 2)
Quarter: 2017Q2

REPORT INFORMATION
  Report Type: Spontaneous
  Country: PE (occurrence: PE)
  Receive Date: 20170608
  Receipt Date: 20170621
  Transmission Date: 20170830
  Serious: Yes (Hospitalization)
  Sender: FDA-Public Use
  Company Number: PHHY2017PE067129

PATIENT
  Age: 44 Year
  Sex: Male

DRUGS (2)
  1. CO-APROVEL [Concomitant]
     Active Substance: HYDROCHLOROTHIAZIDE\IRBESARTAN
     Indication: HYPERTENSION
     Dosage: UNK, PRN
     Route: 065
  2. SIGNIFOR [Suspect]
     Active Substance: PASIREOTIDE
     Indication: CUSHING^S SYNDROME
     Dosage: 0.9 MG, BID
     Route: 058
     Dates: start: 201703, end: 201704

REACTIONS (12)
  - Hyperglycaemia [Recovered/Resolved]
  - Dry mouth [Unknown]
  - Hyperphagia [Unknown]
  - Blister [Recovered/Resolved]
  - Abdominal pain upper [Recovered/Resolved]
  - Fatigue [Unknown]
  - Polydipsia [Unknown]
  - Hypoaesthesia [Unknown]
  - Vision blurred [Unknown]
  - Ketoacidosis [Recovered/Resolved]
  - Polyuria [Unknown]
  - Weight decreased [Unknown]

NARRATIVE: CASE EVENT DATE: 201704
